FAERS Safety Report 15891963 (Version 2)
Quarter: 2019Q1

REPORT INFORMATION
  Report Type: Spontaneous
  Country: US (occurrence: US)
  Receive Date: 20190130
  Receipt Date: 20190301
  Transmission Date: 20190417
  Serious: Yes (Hospitalization)
  Sender: FDA-Public Use
  Company Number: US-IMPAX LABORATORIES, LLC-2019-IPXL-00315

PATIENT
  Age: 50 Year
  Sex: Female
  Weight: 46.3 kg

DRUGS (3)
  1. METFORMIN HYDROCHLORIDE ER [Suspect]
     Active Substance: METFORMIN HYDROCHLORIDE
     Indication: AFFECTIVE DISORDER
     Dosage: TWO 850 MILLIGRAM TABLET SEVERAL TIMES DAILY
     Route: 048
  2. FUROSEMIDE. [Concomitant]
     Active Substance: FUROSEMIDE
     Indication: OEDEMA
     Dosage: UNK
     Route: 065
  3. METFORMIN HYDROCHLORIDE ER [Suspect]
     Active Substance: METFORMIN HYDROCHLORIDE
     Indication: WEIGHT DECREASED

REACTIONS (6)
  - Toxicity to various agents [Recovering/Resolving]
  - Shock [Unknown]
  - Cachexia [Recovering/Resolving]
  - Drug abuse [Unknown]
  - Chronic kidney disease [Unknown]
  - Lactic acidosis [Recovering/Resolving]
